FAERS Safety Report 9704352 (Version 1)
Quarter: 2013Q4

REPORT INFORMATION
  Report Type: Spontaneous
  Country: US (occurrence: US)
  Receive Date: 20131122
  Receipt Date: 20131122
  Transmission Date: 20140711
  Serious: Yes (Hospitalization, Other)
  Sender: FDA-Public Use
  Company Number: US-PFIZER INC-2013333164

PATIENT
  Age: 56 Year
  Sex: Female
  Weight: 144.2 kg

DRUGS (1)
  1. EFFEXOR XR [Suspect]
     Indication: DEPRESSION
     Dosage: 450 MG, DAILY (ONCE AT NIGHT)
     Route: 048

REACTIONS (5)
  - Gastric disorder [Unknown]
  - Depression [Not Recovered/Not Resolved]
  - Weight decreased [Unknown]
  - Thyroid disorder [Unknown]
  - Drug ineffective [Unknown]
